FAERS Safety Report 23586860 (Version 1)
Quarter: 2024Q1

REPORT INFORMATION
  Report Type: Spontaneous
  Country: US (occurrence: US)
  Receive Date: 20240301
  Receipt Date: 20240301
  Transmission Date: 20240410
  Serious: No
  Sender: FDA-Public Use
  Company Number: US-PFIZER INC-PV202400024581

PATIENT
  Age: 68 Year
  Sex: Female

DRUGS (1)
  1. LORBRENA [Suspect]
     Active Substance: LORLATINIB
     Indication: Sarcoma
     Dosage: TAKE 75 MG NIGHTLY
     Route: 048

REACTIONS (2)
  - Neoplasm progression [Unknown]
  - Off label use [Unknown]
